FAERS Safety Report 7809049-X (Version None)
Quarter: 2011Q4

REPORT INFORMATION
  Report Type: 
  Country: None (occurrence: None)
  Receive Date: 20111012
  Receipt Date: 20111005
  Transmission Date: 20120403
  Serious: Yes (Death, Hospitalization)
  Sender: FDA-Public Use
  Company Number: MX-SANOFI-AVENTIS-2010SA075433

PATIENT
  Sex: Male

DRUGS (1)
  1. LANTUS [Suspect]
     Indication: TYPE 2 DIABETES MELLITUS
     Dosage: 30 IU / DAY (20 IU IN THE MORNING AND 10 IU AT NIGHT
     Route: 058
     Dates: start: 20070101, end: 20110106

REACTIONS (2)
  - CEREBROVASCULAR ACCIDENT [None]
  - HYPERGLYCAEMIA [None]
